FAERS Safety Report 5474504-7 (Version None)
Quarter: 2007Q4

REPORT INFORMATION
  Report Type: 
  Country: None (occurrence: None)
  Receive Date: 20071002
  Receipt Date: 20070921
  Transmission Date: 20080405
  Serious: Yes (Death, Life-Threatening)
  Sender: FDA-Public Use
  Company Number: IN-JNJFOC-20070904156

PATIENT
  Age: 45 Year
  Sex: Female
  Weight: 104 kg

DRUGS (2)
  1. CAELYX [Suspect]
     Indication: OVARIAN CANCER
     Route: 042
  2. CARBOPLATIN [Suspect]
     Indication: OVARIAN CANCER
     Route: 042

REACTIONS (3)
  - HYPOTENSION [None]
  - RESPIRATORY ARREST [None]
  - SEPSIS [None]
